FAERS Safety Report 26008889 (Version 2)
Quarter: 2025Q4

REPORT INFORMATION
  Report Type: Spontaneous
  Country: AU (occurrence: AU)
  Receive Date: 20251106
  Receipt Date: 20251221
  Transmission Date: 20260118
  Serious: Yes (Other)
  Sender: AMGEN
  Company Number: AU-AMGEN-AUSSP2025217555

PATIENT
  Age: 40 Year
  Sex: Female

DRUGS (1)
  1. ADALIMUMAB [Suspect]
     Active Substance: ADALIMUMAB
     Indication: Rheumatoid arthritis
     Dosage: UNK
     Route: 065
     Dates: start: 202412

REACTIONS (6)
  - Nephrolithiasis [Unknown]
  - Renal disorder [Unknown]
  - Drug ineffective [Unknown]
  - Brain fog [Unknown]
  - Hypertension [Unknown]
  - COVID-19 [Unknown]

NARRATIVE: CASE EVENT DATE: 20250101
